FAERS Safety Report 5888571-X (Version None)
Quarter: 2008Q3

REPORT INFORMATION
  Report Type: 
  Country: None (occurrence: None)
  Receive Date: 20080916
  Receipt Date: 20080908
  Transmission Date: 20090109
  Serious: Yes (Other)
  Sender: FDA-Public Use
  Company Number: 2008SP018489

PATIENT
  Age: 60 Year
  Sex: Male

DRUGS (4)
  1. NITRO-DUR [Suspect]
     Indication: BLOOD PRESSURE
     Dosage: 0.2 MG; ; TDER
     Route: 062
  2. NITRO-DUR [Suspect]
     Indication: CARDIAC DISORDER
     Dosage: 0.2 MG; ; TDER
     Route: 062
  3. NITRO-DUR [Suspect]
     Indication: LUNG DISORDER
     Dosage: 0.2 MG; ; TDER
     Route: 062
  4. NITRO-DUR [Suspect]
     Indication: OFF LABEL USE
     Dosage: 0.2 MG; ; TDER
     Route: 062

REACTIONS (3)
  - DRUG TOLERANCE [None]
  - HEADACHE [None]
  - SEXUAL DYSFUNCTION [None]
